FAERS Safety Report 11302898 (Version 1)
Quarter: 2015Q3

REPORT INFORMATION
  Report Type: Spontaneous
  Country: US (occurrence: US)
  Receive Date: 20150723
  Receipt Date: 20150723
  Transmission Date: 20151125
  Serious: Yes (Disabling, Other)
  Sender: FDA-Public Use
  Company Number: US-JNJFOC-20150709942

PATIENT
  Sex: Female

DRUGS (1)
  1. BENADRYL [Suspect]
     Active Substance: DIPHENHYDRAMINE HYDROCHLORIDE
     Indication: SEXUAL ABUSE
     Dosage: 3 PILLS
     Route: 048

REACTIONS (7)
  - Dizziness [Unknown]
  - Nausea [Unknown]
  - Musculoskeletal disorder [None]
  - Sensory disturbance [Unknown]
  - Speech disorder [Unknown]
  - Intentional product misuse [Unknown]
  - Vision blurred [Unknown]
